FAERS Safety Report 21215210 (Version 1)
Quarter: 2022Q3

REPORT INFORMATION
  Report Type: Spontaneous
  Country: CA (occurrence: CA)
  Receive Date: 20220816
  Receipt Date: 20220816
  Transmission Date: 20221026
  Serious: Yes (Other)
  Sender: FDA-Public Use
  Company Number: CA-JNJFOC-20220827284

PATIENT
  Age: 42 Year
  Sex: Female

DRUGS (1)
  1. REMICADE [Suspect]
     Active Substance: INFLIXIMAB
     Indication: Crohn^s disease
     Route: 041

REACTIONS (9)
  - Decreased appetite [Unknown]
  - Abdominal pain [Unknown]
  - Condition aggravated [Unknown]
  - Ear infection [Unknown]
  - Frequent bowel movements [Unknown]
  - Myalgia [Unknown]
  - Nausea [Unknown]
  - Intentional product use issue [Unknown]
  - Off label use [Unknown]
